FAERS Safety Report 7584073-3 (Version None)
Quarter: 2011Q2

REPORT INFORMATION
  Report Type: 
  Country: None (occurrence: None)
  Receive Date: 20110628
  Receipt Date: 20110628
  Transmission Date: 20111010
  Serious: Yes (Life-Threatening, Other)
  Sender: FDA-Public Use
  Company Number: None

PATIENT
  Sex: Male
  Weight: 86.1834 kg

DRUGS (7)
  1. VERAPAMIL EXTENDED-RELEASE [Suspect]
     Indication: MIGRAINE PROPHYLAXIS
     Dosage: 240MG QD PO
     Route: 048
     Dates: start: 20110429, end: 20110613
  2. BUPROPION HCL [Concomitant]
  3. CHOLESTYROMINE [Concomitant]
  4. CIALIS [Concomitant]
  5. SUMATRIPTAN SUCCINATE [Concomitant]
  6. CLONAZEPAM [Concomitant]
  7. MIRTAZEPAM [Concomitant]

REACTIONS (3)
  - NAUSEA [None]
  - CHROMATURIA [None]
  - BACK PAIN [None]
